FAERS Safety Report 25987973 (Version 2)
Quarter: 2025Q4

REPORT INFORMATION
  Report Type: Other
  Country: GB (occurrence: GB)
  Receive Date: 20251103
  Receipt Date: 20251111
  Transmission Date: 20260117
  Serious: Yes (Other)
  Sender: GLENMARK
  Company Number: None

PATIENT
  Age: 55 Year
  Sex: Female
  Weight: 96 kg

DRUGS (2)
  1. MONTELUKAST SODIUM [Suspect]
     Active Substance: MONTELUKAST SODIUM
     Indication: Asthma
     Dosage: 10 MILLIGRAM, HS (10MG AT NIGHT)
     Route: 065
     Dates: start: 20250718
  2. MONTELUKAST SODIUM [Suspect]
     Active Substance: MONTELUKAST SODIUM
     Indication: Asthma
     Dosage: UNK
     Route: 065

REACTIONS (3)
  - Mental disorder [Recovering/Resolving]
  - Crying [Unknown]
  - Aggression [Unknown]

NARRATIVE: CASE EVENT DATE: 20251006
